FAERS Safety Report 16238710 (Version 1)
Quarter: 2019Q2

REPORT INFORMATION
  Report Type: Spontaneous
  Country: US (occurrence: US)
  Receive Date: 20190424
  Receipt Date: 20190424
  Transmission Date: 20190711
  Serious: Yes (Other)
  Sender: FDA-Public Use
  Company Number: None

PATIENT
  Age: 54 Year
  Sex: Female
  Weight: 108.45 kg

DRUGS (1)
  1. INVOKANA [Suspect]
     Active Substance: CANAGLIFLOZIN
     Indication: DIABETES MELLITUS
     Route: 048
     Dates: start: 20190407, end: 20190421

REACTIONS (5)
  - Limb discomfort [None]
  - Myalgia [None]
  - Pain in extremity [None]
  - Contusion [None]
  - Gait disturbance [None]

NARRATIVE: CASE EVENT DATE: 20190421
